FAERS Safety Report 7478722-8 (Version None)
Quarter: 2011Q2

REPORT INFORMATION
  Report Type: 
  Country: None (occurrence: None)
  Receive Date: 20110513
  Receipt Date: 20110419
  Transmission Date: 20111010
  Serious: Yes (Life-Threatening, Other)
  Sender: FDA-Public Use
  Company Number: US-BAYER-201018193NA

PATIENT
  Age: 24 Year
  Sex: Female
  Weight: 61.224 kg

DRUGS (2)
  1. YASMIN [Suspect]
     Indication: PRODUCT USED FOR UNKNOWN INDICATION
     Dosage: AS USED DOSE: UNK
     Route: 048
     Dates: start: 20031201, end: 20091101
  2. PRILOSEC [Concomitant]

REACTIONS (5)
  - ORGAN FAILURE [None]
  - BILIARY DYSKINESIA [None]
  - GALLBLADDER DISORDER [None]
  - INJURY [None]
  - CHOLECYSTITIS CHRONIC [None]
